FAERS Safety Report 4321998-6 (Version None)
Quarter: 2004Q1

REPORT INFORMATION
  Report Type: 
  Country: None (occurrence: None)
  Receive Date: 20040323
  Receipt Date: 20030916
  Transmission Date: 20041129
  Serious: Yes (Hospitalization)
  Sender: FDA-Public Use
  Company Number: FR-BRISTOL-MYERS SQUIBB COMPANY-12386959

PATIENT
  Age: 19 Year
  Sex: Male

DRUGS (6)
  1. HOLOXAN [Suspect]
     Indication: BONE SARCOMA
     Route: 042
     Dates: start: 20030321, end: 20030324
  2. ETOPOSIDE [Suspect]
     Indication: BONE SARCOMA
     Route: 042
     Dates: start: 20030321, end: 20030324
  3. FOSFOCINE [Suspect]
     Route: 042
     Dates: start: 20030331
  4. TARGOCID [Suspect]
     Route: 042
     Dates: start: 20030331
  5. TIENAM [Suspect]
     Route: 048
     Dates: start: 20030301, end: 20030331
  6. METHYLENE BLUE [Concomitant]
     Indication: PREMEDICATION

REACTIONS (4)
  - APATHY [None]
  - ASTHENIA [None]
  - ENCEPHALOPATHY [None]
  - HALLUCINATION [None]
